FAERS Safety Report 24779436 (Version 1)
Quarter: 2024Q4

REPORT INFORMATION
  Report Type: Spontaneous
  Country: CH (occurrence: CH)
  Receive Date: 20241226
  Receipt Date: 20241226
  Transmission Date: 20250115
  Serious: Yes (Hospitalization)
  Sender: MYLAN
  Company Number: None

PATIENT
  Age: 69 Year
  Sex: Male
  Weight: 44 kg

DRUGS (17)
  1. NORVASC [Suspect]
     Active Substance: AMLODIPINE BESYLATE
     Indication: Product used for unknown indication
     Dosage: 5 MILLIGRAM, QD (1-0-0-0)
     Route: 048
  2. BESREMI [Suspect]
     Active Substance: ROPEGINTERFERON ALFA-2B-NJFT
     Indication: Polycythaemia vera
     Dosage: 250 MICROGRAM, Q2W
     Route: 065
     Dates: start: 202101, end: 20230824
  3. HYDROXYUREA [Suspect]
     Active Substance: HYDROXYUREA
     Indication: Polycythaemia vera
     Dosage: 500 MILLIGRAM, QD (500 MG PER DAY FROM MONDAY TILL SATURDAY)
     Route: 065
     Dates: start: 202101, end: 20231025
  4. HYDROXYUREA [Suspect]
     Active Substance: HYDROXYUREA
     Dosage: 500 MILLIGRAM, QD
     Route: 048
     Dates: start: 20231026
  5. NALOXONE HYDROCHLORIDE\OXYCODONE HYDROCHLORIDE [Suspect]
     Active Substance: NALOXONE HYDROCHLORIDE\OXYCODONE HYDROCHLORIDE
     Indication: Product used for unknown indication
     Dosage: 1 DOSAGE FORM, BID (5/2.5 MG 1-0-1-0)
     Route: 048
  6. OXYCODONE HYDROCHLORIDE [Suspect]
     Active Substance: OXYCODONE HYDROCHLORIDE
     Indication: Product used for unknown indication
     Dosage: UNK, PRN (1-2 CAPSULES EVERY 2H)
     Route: 048
  7. ASPIRIN [Concomitant]
     Active Substance: ASPIRIN
     Indication: Product used for unknown indication
     Dosage: 100 MILLIGRAM, QD (1-0-0-0)
     Route: 048
  8. Calcimagon D3 Forte [Concomitant]
     Dosage: 1 DOSAGE FORM, QD (1-0-0-0)
     Route: 048
  9. Bioflorin [Concomitant]
     Dosage: 1 DOSAGE FORM, Q8H (1-1-1-0)
     Route: 048
  10. FRESUBIN [Concomitant]
     Active Substance: AMINO ACIDS\DEXTROSE\ELECTROLYTES NOS\SOYBEAN OIL\VITAMINS
     Dosage: 2 DOSAGE FORM, QD (1-1-0-0)
     Route: 048
  11. NEBIVOLOL [Concomitant]
     Active Substance: NEBIVOLOL
     Dosage: 2.5 MILLIGRAM, QD (0.5-0-0-0)
     Route: 048
  12. ACETAMINOPHEN [Concomitant]
     Active Substance: ACETAMINOPHEN
     Dosage: 500 MILLIGRAM, Q6H (1-1-1-1)
     Route: 048
  13. Novalgin [Concomitant]
     Dosage: 500 MILLIGRAM, PRN (UP TO 4X DAILY)
     Route: 048
  14. Paspertin [Concomitant]
     Dosage: 10 MILLIGRAM, PRN (UP TO 3X DAILY)
     Route: 048
  15. MOVICOL [Concomitant]
     Active Substance: POLYETHYLENE GLYCOL 3350\POTASSIUM CHLORIDE\SODIUM BICARBONATE\SODIUM CHLORIDE
     Dosage: 1 DOSAGE FORM, PRN (UP TO 1X DAILY)
     Route: 048
  16. SODIUM PICOSULFATE [Concomitant]
     Active Substance: SODIUM PICOSULFATE
     Dosage: UNK, PRN (8-10 DROPS)
     Route: 048
  17. INREBIC [Concomitant]
     Active Substance: FEDRATINIB HYDROCHLORIDE
     Indication: Polycythaemia vera
     Dosage: 200 MILLIGRAM, QD
     Route: 065
     Dates: start: 20230825

REACTIONS (2)
  - Malnutrition [Recovering/Resolving]
  - Abnormal loss of weight [Recovering/Resolving]
